FAERS Safety Report 6736350-3 (Version None)
Quarter: 2010Q2

REPORT INFORMATION
  Report Type: 
  Country: None (occurrence: None)
  Receive Date: 20100520
  Receipt Date: 20100520
  Transmission Date: 20101027
  Serious: No
  Sender: FDA-Public Use
  Company Number: None

PATIENT
  Sex: Female
  Weight: 63.6 kg

DRUGS (3)
  1. COPAXONE [Suspect]
     Dosage: 20MG PFS DAILY SUBQUTANEOUS FEBURARY
     Route: 058
  2. TYLENOL (CAPLET) [Concomitant]
  3. PRILOSEC [Concomitant]

REACTIONS (1)
  - ARTHRALGIA [None]
